FAERS Safety Report 9970777 (Version 1)
Quarter: 2014Q1

REPORT INFORMATION
  Report Type: Report from Study
  Country: US (occurrence: US)
  Receive Date: 20140306
  Receipt Date: 20140306
  Transmission Date: 20141002
  Serious: Yes (Other)
  Sender: FDA-Public Use
  Company Number: US-ABBVIE-13P-163-1149087-00

PATIENT
  Sex: Female

DRUGS (11)
  1. HUMIRA [Suspect]
     Indication: RHEUMATOID ARTHRITIS
  2. HUMIRA [Suspect]
  3. PREDNISONE [Concomitant]
     Indication: RHEUMATOID ARTHRITIS
     Dosage: 5 MG DAILY
  4. CELEBREX [Concomitant]
     Indication: ARTHRALGIA
     Dosage: 200 MG DAILY
  5. FOLIC ACID [Concomitant]
     Indication: VITAMIN SUPPLEMENTATION
     Dosage: 1 MG DAILY
  6. FOLIC ACID [Concomitant]
     Indication: RHEUMATOID ARTHRITIS
  7. NEXIUM [Concomitant]
     Indication: GASTROOESOPHAGEAL REFLUX DISEASE
     Dosage: 40 MG DAILY
  8. FLEXERIL [Concomitant]
     Indication: MUSCLE RELAXANT THERAPY
  9. FLEXERIL [Concomitant]
     Indication: NECK PAIN
  10. FLEXERIL [Concomitant]
     Indication: BACK PAIN
  11. VIVELLE [Concomitant]
     Indication: HORMONE REPLACEMENT THERAPY

REACTIONS (13)
  - Pharyngeal operation [Unknown]
  - Infection [Unknown]
  - Ear pain [Unknown]
  - Ear haemorrhage [Unknown]
  - Urinary tract infection [Unknown]
  - Stress [Not Recovered/Not Resolved]
  - Abdominal pain [Not Recovered/Not Resolved]
  - Back pain [Not Recovered/Not Resolved]
  - Chills [Not Recovered/Not Resolved]
  - Fatigue [Not Recovered/Not Resolved]
  - Pain [Not Recovered/Not Resolved]
  - Dysuria [Not Recovered/Not Resolved]
  - Pyrexia [Not Recovered/Not Resolved]
